FAERS Safety Report 7539473-4 (Version None)
Quarter: 2011Q2

REPORT INFORMATION
  Report Type: 
  Country: None (occurrence: None)
  Receive Date: 20110609
  Receipt Date: 20110609
  Transmission Date: 20111010
  Serious: Yes (Hospitalization)
  Sender: FDA-Public Use
  Company Number: None

PATIENT
  Sex: Male
  Weight: 93.3 kg

DRUGS (8)
  1. BESYLATE [Concomitant]
  2. FINASTERIDE + WARFARIN [Concomitant]
  3. AMLODIPINE [Concomitant]
  4. CARDURA [Concomitant]
  5. ELIGARD [Concomitant]
  6. AVELOX [Concomitant]
  7. REVLIMID [Suspect]
     Indication: PROSTATE CANCER
     Dosage: 25MG QD PO
     Route: 048
     Dates: start: 20101229, end: 20110517
  8. BENAZEPRIL HYDROCHLORIDE [Concomitant]

REACTIONS (2)
  - HAEMATURIA [None]
  - INTERNATIONAL NORMALISED RATIO INCREASED [None]
